FAERS Safety Report 5365832-4 (Version None)
Quarter: 2007Q2

REPORT INFORMATION
  Report Type: 
  Country: None (occurrence: None)
  Receive Date: 20070621
  Receipt Date: 20070608
  Transmission Date: 20071010
  Serious: Yes (Other)
  Sender: FDA-Public Use
  Company Number: US-SHR-US-2007-001486

PATIENT
  Age: 49 Year
  Sex: Female
  Weight: 73.469 kg

DRUGS (12)
  1. BETASERON [Suspect]
     Indication: SECONDARY PROGRESSIVE MULTIPLE SCLEROSIS
     Dosage: 8 MIU, EVERY 2D
     Route: 058
     Dates: start: 20031002
  2. CORTICOSTEROIDS [Concomitant]
     Indication: SECONDARY PROGRESSIVE MULTIPLE SCLEROSIS
     Dosage: UNK, 1X/MONTH
     Dates: start: 20070101
  3. METHOTREXATE [Concomitant]
     Indication: SECONDARY PROGRESSIVE MULTIPLE SCLEROSIS
     Dosage: 7.5 MG, 1X/WEEK
  4. ABILIFY [Concomitant]
     Dosage: 20 MG, 1X/DAY
  5. BACLOFEN [Concomitant]
     Dosage: 30 MG, 3X/DAY
  6. PREVACID [Concomitant]
     Dosage: 30 MG, 1X/DAY
  7. SEROQUEL [Concomitant]
     Dosage: 200 MG, 3X/DAY
  8. CYMBALTA [Concomitant]
     Dosage: 30 MG, 1X/DAY
  9. TRICOR [Concomitant]
     Dosage: 145 MG, 1X/DAY
  10. TRAZODONE HCL [Concomitant]
     Dosage: 150 MG, 1X/DAY
  11. NEURONTIN [Concomitant]
     Dosage: 800 MG, UP TO 4 TIMES; OTHER
  12. ULTRAM [Concomitant]
     Dosage: 50 MG, 4X/DAY

REACTIONS (4)
  - DENTAL CARIES [None]
  - POST PROCEDURAL SWELLING [None]
  - TEETH BRITTLE [None]
  - TOOTHACHE [None]
